FAERS Safety Report 19020596 (Version 1)
Quarter: 2021Q1

REPORT INFORMATION
  Report Type: Spontaneous
  Country: FR (occurrence: FR)
  Receive Date: 20210317
  Receipt Date: 20210317
  Transmission Date: 20210420
  Serious: Yes (Other)
  Sender: FDA-Public Use
  Company Number: FR-PFIZER INC-2021242137

PATIENT
  Age: 87 Year
  Sex: Female

DRUGS (62)
  1. METHYLPREDNISOLONE SODIUM SUCCINATE. [Suspect]
     Active Substance: METHYLPREDNISOLONE SODIUM SUCCINATE
     Indication: PANCREATIC CARCINOMA
     Dosage: 40 MG, AT EACH CHEMOTHERAPY CURE
     Route: 042
     Dates: start: 20200909
  2. METHYLPREDNISOLONE SODIUM SUCCINATE. [Suspect]
     Active Substance: METHYLPREDNISOLONE SODIUM SUCCINATE
     Dosage: 40 MG AT EACH CHEMOTHERAPY CURE
     Route: 042
     Dates: start: 20210126
  3. FLUOROURACIL. [Suspect]
     Active Substance: FLUOROURACIL
     Dosage: UNK
     Route: 042
     Dates: start: 20201229
  4. LEVOFOLINATE SODIUM [Suspect]
     Active Substance: LEVOLEUCOVORIN DISODIUM
     Dosage: 170 MG AT EACH CHEMOTHERAPY CURE
     Route: 042
     Dates: start: 20201008
  5. ONDANSETRON HYDROCHLORIDE. [Interacting]
     Active Substance: ONDANSETRON HYDROCHLORIDE
     Dosage: 8 MG AT EACH CHEMOTHERAPY CURE
     Route: 042
     Dates: start: 20200923
  6. ONDANSETRON HYDROCHLORIDE. [Interacting]
     Active Substance: ONDANSETRON HYDROCHLORIDE
     Dosage: 8 MG AT EACH CHEMOTHERAPY CURE
     Route: 042
     Dates: start: 20201229
  7. SODIUM CHLORIDE. [Suspect]
     Active Substance: SODIUM CHLORIDE
     Dosage: 100 ML AT EACH CHEMOTHERAPY CURE
     Route: 042
     Dates: start: 20210112
  8. PERINDOPRIL SANDOZ [Concomitant]
     Active Substance: PERINDOPRIL
     Indication: CARDIAC DISORDER
     Dosage: 1 DF, 1X/DAY
     Route: 048
  9. FLUOROURACIL. [Suspect]
     Active Substance: FLUOROURACIL
     Dosage: UNK
     Route: 042
     Dates: start: 20200917
  10. LEVOFOLINATE SODIUM [Suspect]
     Active Substance: LEVOLEUCOVORIN DISODIUM
     Dosage: 170 MG AT EACH CHEMOTHERAPY CURE
     Route: 042
     Dates: start: 20200923
  11. LEVOFOLINATE SODIUM [Suspect]
     Active Substance: LEVOLEUCOVORIN DISODIUM
     Dosage: 170 MG AT EACH CHEMOTHERAPY CURE
     Route: 042
     Dates: start: 20201201
  12. LEVOFOLINATE SODIUM [Suspect]
     Active Substance: LEVOLEUCOVORIN DISODIUM
     Dosage: 170 MG AT EACH CHEMOTHERAPY CURE
     Route: 042
     Dates: start: 20210126
  13. SODIUM CHLORIDE. [Suspect]
     Active Substance: SODIUM CHLORIDE
     Dosage: 100 ML AT EACH CHEMOTHERAPY CURE
     Route: 042
     Dates: start: 20201201
  14. METHYLPREDNISOLONE SODIUM SUCCINATE. [Suspect]
     Active Substance: METHYLPREDNISOLONE SODIUM SUCCINATE
     Dosage: 40 MG AT EACH CHEMOTHERAPY CURE
     Route: 042
     Dates: start: 20201008
  15. METHYLPREDNISOLONE SODIUM SUCCINATE. [Suspect]
     Active Substance: METHYLPREDNISOLONE SODIUM SUCCINATE
     Dosage: 40 MG AT EACH CHEMOTHERAPY CURE
     Route: 042
     Dates: start: 20201201
  16. FLUOROURACIL. [Suspect]
     Active Substance: FLUOROURACIL
     Indication: PANCREATIC CARCINOMA
     Dosage: UNK
     Route: 042
     Dates: start: 20200909
  17. FLUOROURACIL. [Suspect]
     Active Substance: FLUOROURACIL
     Dosage: UNK
     Route: 042
     Dates: start: 20201215
  18. LEVOFOLINATE SODIUM [Suspect]
     Active Substance: LEVOLEUCOVORIN DISODIUM
     Indication: CHEMOTHERAPY
     Dosage: 170 MG AT EACH CHEMOTHERAPY CURE
     Route: 042
     Dates: start: 20200909
  19. ONDANSETRON HYDROCHLORIDE. [Interacting]
     Active Substance: ONDANSETRON HYDROCHLORIDE
     Dosage: 8 MG AT EACH CHEMOTHERAPY CURE
     Route: 042
     Dates: start: 20201008
  20. ONDANSETRON HYDROCHLORIDE. [Interacting]
     Active Substance: ONDANSETRON HYDROCHLORIDE
     Dosage: 8 MG AT EACH CHEMOTHERAPY CURE
     Route: 042
     Dates: start: 20201015
  21. SODIUM CHLORIDE. [Suspect]
     Active Substance: SODIUM CHLORIDE
     Dosage: 100 ML AT EACH CHEMOTHERAPY CURE
     Route: 042
     Dates: start: 20200917
  22. FUROSEMIDE SANDOZ [Concomitant]
     Active Substance: FUROSEMIDE
     Indication: CARDIAC DISORDER
     Dosage: 1 DF, 1X/DAY
     Route: 048
  23. METHYLPREDNISOLONE SODIUM SUCCINATE. [Suspect]
     Active Substance: METHYLPREDNISOLONE SODIUM SUCCINATE
     Dosage: 40 MG AT EACH CHEMOTHERAPY CURE
     Route: 042
     Dates: start: 20201015
  24. METHYLPREDNISOLONE SODIUM SUCCINATE. [Suspect]
     Active Substance: METHYLPREDNISOLONE SODIUM SUCCINATE
     Dosage: 40 MG AT EACH CHEMOTHERAPY CURE
     Route: 042
     Dates: start: 20210112
  25. FLUOROURACIL. [Suspect]
     Active Substance: FLUOROURACIL
     Dosage: UNK
     Route: 042
     Dates: start: 20201117
  26. LEVOFOLINATE SODIUM [Suspect]
     Active Substance: LEVOLEUCOVORIN DISODIUM
     Dosage: 170 MG AT EACH CHEMOTHERAPY CURE
     Route: 042
     Dates: start: 20210112
  27. AMIODARONE ARROW [Interacting]
     Active Substance: AMIODARONE
     Indication: ARRHYTHMIA
     Dosage: 200 MG
     Route: 048
     Dates: start: 202011
  28. ONDANSETRON HYDROCHLORIDE. [Interacting]
     Active Substance: ONDANSETRON HYDROCHLORIDE
     Indication: CHEMOTHERAPY
     Dosage: 8 MG AT EACH CHEMOTHERAPY CURE
     Route: 042
     Dates: start: 20200909
  29. ONDANSETRON HYDROCHLORIDE. [Interacting]
     Active Substance: ONDANSETRON HYDROCHLORIDE
     Dosage: 8 MG AT EACH CHEMOTHERAPY CURE
     Route: 042
     Dates: start: 20210112
  30. SODIUM CHLORIDE. [Suspect]
     Active Substance: SODIUM CHLORIDE
     Dosage: 100 ML AT EACH CHEMOTHERAPY CURE
     Route: 042
     Dates: start: 20201117
  31. PANTOPRAZOLE SODIUM. [Concomitant]
     Active Substance: PANTOPRAZOLE SODIUM
     Indication: GASTROINTESTINAL DISORDER
     Dosage: 1 DF, 1X/DAY
     Route: 048
  32. ELIQUIS [Concomitant]
     Active Substance: APIXABAN
     Indication: CARDIAC DISORDER
     Dosage: 1 DF, 2X/DAY
     Route: 048
  33. METHYLPREDNISOLONE SODIUM SUCCINATE. [Suspect]
     Active Substance: METHYLPREDNISOLONE SODIUM SUCCINATE
     Dosage: 40 MG AT EACH CHEMOTHERAPY CURE
     Route: 042
     Dates: start: 20201229
  34. FLUOROURACIL. [Suspect]
     Active Substance: FLUOROURACIL
     Dosage: UNK
     Route: 042
     Dates: start: 20201008
  35. FLUOROURACIL. [Suspect]
     Active Substance: FLUOROURACIL
     Dosage: UNK
     Route: 042
     Dates: start: 20210112
  36. FLUOROURACIL. [Suspect]
     Active Substance: FLUOROURACIL
     Dosage: UNK
     Route: 042
     Dates: start: 20210126
  37. LEVOFOLINATE SODIUM [Suspect]
     Active Substance: LEVOLEUCOVORIN DISODIUM
     Dosage: 170 MG AT EACH CHEMOTHERAPY CURE
     Route: 042
     Dates: start: 20200917
  38. LEVOFOLINATE SODIUM [Suspect]
     Active Substance: LEVOLEUCOVORIN DISODIUM
     Dosage: 170 MG AT EACH CHEMOTHERAPY CURE
     Route: 042
     Dates: start: 20201015
  39. ONDANSETRON HYDROCHLORIDE. [Interacting]
     Active Substance: ONDANSETRON HYDROCHLORIDE
     Dosage: 8 MG AT EACH CHEMOTHERAPY CURE
     Route: 042
     Dates: start: 20200917
  40. ONDANSETRON HYDROCHLORIDE. [Interacting]
     Active Substance: ONDANSETRON HYDROCHLORIDE
     Dosage: 8 MG AT EACH CHEMOTHERAPY CURE
     Route: 042
     Dates: start: 20201201
  41. SODIUM CHLORIDE. [Suspect]
     Active Substance: SODIUM CHLORIDE
     Dosage: 100 ML AT EACH CHEMOTHERAPY CURE
     Route: 042
     Dates: start: 20200923
  42. SODIUM CHLORIDE. [Suspect]
     Active Substance: SODIUM CHLORIDE
     Dosage: 100 ML AT EACH CHEMOTHERAPY CURE
     Route: 042
     Dates: start: 20201015
  43. ALLOPURINOL TEVA [Concomitant]
     Active Substance: ALLOPURINOL
     Indication: CARDIAC DISORDER
     Dosage: 1 DF, 1X/DAY
     Route: 048
  44. METHYLPREDNISOLONE SODIUM SUCCINATE. [Suspect]
     Active Substance: METHYLPREDNISOLONE SODIUM SUCCINATE
     Dosage: 40 MG AT EACH CHEMOTHERAPY CURE
     Route: 042
     Dates: start: 20201117
  45. ONDANSETRON HYDROCHLORIDE. [Interacting]
     Active Substance: ONDANSETRON HYDROCHLORIDE
     Dosage: 8 MG AT EACH CHEMOTHERAPY CURE
     Route: 042
     Dates: start: 20201117
  46. ONDANSETRON HYDROCHLORIDE. [Interacting]
     Active Substance: ONDANSETRON HYDROCHLORIDE
     Dosage: 8 MG AT EACH CHEMOTHERAPY CURE
     Route: 042
     Dates: start: 20201215
  47. SODIUM CHLORIDE. [Suspect]
     Active Substance: SODIUM CHLORIDE
     Indication: CHEMOTHERAPY
     Dosage: 100 MILLILITER, AT EACH CHEMOTHERAPY CURE
     Route: 042
     Dates: start: 20200909
  48. SODIUM CHLORIDE. [Suspect]
     Active Substance: SODIUM CHLORIDE
     Dosage: 100 ML AT EACH CHEMOTHERAPY CURE
     Route: 042
     Dates: start: 20201215
  49. SODIUM CHLORIDE. [Suspect]
     Active Substance: SODIUM CHLORIDE
     Dosage: 100 ML AT EACH CHEMOTHERAPY CURE
     Route: 042
     Dates: start: 20210126
  50. METHYLPREDNISOLONE SODIUM SUCCINATE. [Suspect]
     Active Substance: METHYLPREDNISOLONE SODIUM SUCCINATE
     Dosage: 40 MG AT EACH CHEMOTHERAPY CURE
     Route: 042
     Dates: start: 20200917
  51. METHYLPREDNISOLONE SODIUM SUCCINATE. [Suspect]
     Active Substance: METHYLPREDNISOLONE SODIUM SUCCINATE
     Dosage: 40 MG AT EACH CHEMOTHERAPY CURE
     Route: 042
     Dates: start: 20201215
  52. FLUOROURACIL. [Suspect]
     Active Substance: FLUOROURACIL
     Dosage: UNK
     Route: 042
     Dates: start: 20201015
  53. LEVOFOLINATE SODIUM [Suspect]
     Active Substance: LEVOLEUCOVORIN DISODIUM
     Dosage: 170 MG AT EACH CHEMOTHERAPY CURE
     Route: 042
     Dates: start: 20201229
  54. ONDANSETRON HYDROCHLORIDE. [Interacting]
     Active Substance: ONDANSETRON HYDROCHLORIDE
     Dosage: 8 MG AT EACH CHEMOTHERAPY CURE
     Route: 042
     Dates: start: 20210126
  55. SODIUM CHLORIDE. [Suspect]
     Active Substance: SODIUM CHLORIDE
     Dosage: 100 ML AT EACH CHEMOTHERAPY CURE
     Route: 042
     Dates: start: 20201229
  56. METHYLPREDNISOLONE SODIUM SUCCINATE. [Suspect]
     Active Substance: METHYLPREDNISOLONE SODIUM SUCCINATE
     Dosage: 40 MG AT EACH CHEMOTHERAPY CURE
     Route: 042
     Dates: start: 20200923
  57. FLUOROURACIL. [Suspect]
     Active Substance: FLUOROURACIL
     Dosage: UNK
     Route: 042
     Dates: start: 20200923
  58. FLUOROURACIL. [Suspect]
     Active Substance: FLUOROURACIL
     Dosage: UNK
     Route: 042
     Dates: start: 20201201
  59. LEVOFOLINATE SODIUM [Suspect]
     Active Substance: LEVOLEUCOVORIN DISODIUM
     Dosage: 170 MG AT EACH CHEMOTHERAPY CURE
     Route: 042
     Dates: start: 20201117
  60. LEVOFOLINATE SODIUM [Suspect]
     Active Substance: LEVOLEUCOVORIN DISODIUM
     Dosage: 170 MG AT EACH CHEMOTHERAPY CURE
     Route: 042
     Dates: start: 20201215
  61. SODIUM CHLORIDE. [Suspect]
     Active Substance: SODIUM CHLORIDE
     Dosage: 100 ML AT EACH CHEMOTHERAPY CURE
     Route: 042
     Dates: start: 20201008
  62. EUROBIOL [PANCREATIN] [Concomitant]
     Dosage: 6 DF, DAILY

REACTIONS (12)
  - Labelled drug-drug interaction issue [Unknown]
  - Aphasia [Recovered/Resolved]
  - Feeling abnormal [Recovered/Resolved]
  - Vision blurred [Recovered/Resolved]
  - Crying [Recovered/Resolved]
  - Seizure [Recovered/Resolved]
  - Tremor [Recovered/Resolved]
  - Gait inability [Recovered/Resolved]
  - Fatigue [Not Recovered/Not Resolved]
  - Off label use [Unknown]
  - Dyspnoea [Recovered/Resolved]
  - Anxiety [Recovered/Resolved]

NARRATIVE: CASE EVENT DATE: 20200909
